FAERS Safety Report 9162049 (Version 1)
Quarter: 2013Q1

REPORT INFORMATION
  Report Type: Spontaneous
  Country: GB (occurrence: None)
  Receive Date: 20130222
  Receipt Date: 20130222
  Transmission Date: 20140127
  Serious: Yes (Other)
  Sender: FDA-Public Use
  Company Number: KAD201302-000238

PATIENT
  Age: 42 Year
  Sex: Male

DRUGS (3)
  1. RIBAVIRIN [Suspect]
     Indication: HEPATITIS C
     Dosage: 2 DF (TWICE DAILY)?1 DF (TWICE DAILY)
     Dates: start: 20120917
  2. TELAPREVIR [Suspect]
     Indication: HEPATITIS C
     Dosage: (ONE EVERY EIGHT HOURS)
     Route: 048
     Dates: start: 20120917
  3. PEGINTERFERON ALFA-2B (PEGINTERFERON ALFA-2B) [Suspect]
     Indication: HEPATITIS C
     Route: 058
     Dates: start: 20120917

REACTIONS (8)
  - Anaemia [None]
  - Haemoptysis [None]
  - Weight decreased [None]
  - Rash [None]
  - Insomnia [None]
  - Mouth ulceration [None]
  - Fatigue [None]
  - Pruritus [None]
